FAERS Safety Report 8231489-8 (Version None)
Quarter: 2012Q1

REPORT INFORMATION
  Report Type: 
  Country: None (occurrence: None)
  Receive Date: 20120323
  Receipt Date: 20120316
  Transmission Date: 20120608
  Serious: Yes (Other)
  Sender: FDA-Public Use
  Company Number: PHHY2011US52929

PATIENT
  Sex: Female

DRUGS (10)
  1. CLONAZEPAM [Concomitant]
     Indication: MUSCLE SPASMS
     Dosage: 1 MG, UNK
  2. IBUPROFEN [Concomitant]
  3. PERCOCET [Concomitant]
     Indication: PAIN
  4. LAMICTAL [Concomitant]
     Indication: DEPRESSION
     Dosage: 200 MG, QD
  5. GILENYA [Suspect]
     Indication: RELAPSING-REMITTING MULTIPLE SCLEROSIS
     Dosage: 0.5 MG, DAILY
     Route: 048
     Dates: start: 20110609, end: 20120315
  6. GILENYA [Suspect]
     Indication: MULTIPLE SCLEROSIS
  7. ZANAFLEX [Concomitant]
     Indication: MUSCLE SPASMS
     Dosage: 4 MG, QHS
  8. LOVASTATIN [Concomitant]
  9. ASPIRIN [Concomitant]
  10. ADDERALL 5 [Concomitant]

REACTIONS (22)
  - CONFUSIONAL STATE [None]
  - DIZZINESS [None]
  - DISORIENTATION [None]
  - FATIGUE [None]
  - MOOD SWINGS [None]
  - VISION BLURRED [None]
  - MALAISE [None]
  - INFECTION [None]
  - COORDINATION ABNORMAL [None]
  - DYSARTHRIA [None]
  - CHILLS [None]
  - DYSPNOEA [None]
  - VAGINAL HAEMORRHAGE [None]
  - MUSCLE SPASMS [None]
  - VAGINAL DISORDER [None]
  - DEHYDRATION [None]
  - MUSCLE DISORDER [None]
  - MULTIPLE SCLEROSIS RELAPSE [None]
  - T-LYMPHOCYTE COUNT DECREASED [None]
  - ASTHENIA [None]
  - HYPOTENSION [None]
  - PERONEAL NERVE PALSY [None]
